FAERS Safety Report 5763123-0 (Version None)
Quarter: 2008Q2

REPORT INFORMATION
  Report Type: 
  Country: None (occurrence: None)
  Receive Date: 20080609
  Receipt Date: 20080602
  Transmission Date: 20081010
  Serious: Yes (Life-Threatening)
  Sender: FDA-Public Use
  Company Number: JP-ASTRAZENECA-2008AP01087

PATIENT
  Age: 76 Year
  Sex: Male
  Weight: 65 kg

DRUGS (12)
  1. ANAPEINE INJECTION [Suspect]
     Indication: EPIDURAL ANAESTHESIA
     Route: 008
     Dates: start: 20080213, end: 20080214
  2. ANAPEINE INJECTION [Suspect]
     Route: 008
     Dates: start: 20080213, end: 20080213
  3. CARBOCAIN INJECTION [Suspect]
     Indication: EPIDURAL ANAESTHESIA
     Route: 008
     Dates: start: 20080213, end: 20080213
  4. FENTANYL [Suspect]
     Indication: EPIDURAL ANAESTHESIA
     Route: 008
     Dates: start: 20080213, end: 20080214
  5. DROLEPTAN [Suspect]
     Indication: EPIDURAL ANAESTHESIA
     Route: 008
     Dates: start: 20080213, end: 20080214
  6. LIDOCAINE [Concomitant]
     Indication: ANAESTHESIA PROCEDURE
     Route: 042
     Dates: start: 20080213, end: 20080213
  7. EPHEDRIN [Concomitant]
     Indication: ANAESTHESIA PROCEDURE
     Route: 042
     Dates: start: 20080213, end: 20080213
  8. PHENYLEPHRINE HYDROCHLORIDE [Concomitant]
     Indication: ANAESTHESIA PROCEDURE
     Route: 042
     Dates: start: 20080213, end: 20080213
  9. FENTANYL [Concomitant]
     Indication: ANAESTHESIA PROCEDURE
     Route: 042
     Dates: start: 20080213, end: 20080213
  10. ESLAX [Concomitant]
     Indication: ANAESTHESIA PROCEDURE
     Route: 042
     Dates: start: 20080213, end: 20080213
  11. ATROPINE [Concomitant]
     Indication: ANAESTHESIA PROCEDURE
     Route: 042
     Dates: start: 20080213, end: 20080213
  12. NEOSTIGMINE METHYLSULFATE [Concomitant]
     Indication: ANAESTHESIA PROCEDURE
     Route: 042
     Dates: start: 20080213, end: 20080213

REACTIONS (1)
  - ALTERED STATE OF CONSCIOUSNESS [None]
